FAERS Safety Report 7730724-X (Version None)
Quarter: 2011Q3

REPORT INFORMATION
  Report Type: 
  Country: None (occurrence: None)
  Receive Date: 20110906
  Receipt Date: 20110829
  Transmission Date: 20111222
  Serious: Yes (Hospitalization, Disabling)
  Sender: FDA-Public Use
  Company Number: FR-GLAXOSMITHKLINE-B0696326A

PATIENT
  Sex: Female

DRUGS (19)
  1. DEXERYL (FRANCE) [Concomitant]
     Route: 061
  2. ATARAX [Concomitant]
     Dosage: 25MG AS REQUIRED
     Route: 048
  3. AVANDAMET [Suspect]
     Indication: TYPE 2 DIABETES MELLITUS
     Route: 048
     Dates: start: 20040301, end: 20100801
  4. VALSARTAN  AND HYDROCHLOROTHIAZIDE [Concomitant]
     Dosage: 80MG PER DAY
     Route: 048
  5. CELECTOL [Concomitant]
     Dosage: 1TAB PER DAY
     Route: 048
  6. FERROUS SULFATE TAB [Concomitant]
     Route: 048
  7. BIAFINE [Concomitant]
     Route: 061
  8. PROZAC [Concomitant]
     Dosage: 20MG PER DAY
     Route: 048
     Dates: start: 20091022
  9. CRESTOR [Concomitant]
     Dosage: 5MG PER DAY
     Route: 048
     Dates: start: 20100512
  10. LEVOTHYROXINE SODIUM [Concomitant]
     Dosage: 112.5MCG PER DAY
     Route: 048
  11. NEXIUM [Concomitant]
     Dosage: 20MG PER DAY
     Route: 048
     Dates: start: 20100512
  12. OMEPRAZOLE [Concomitant]
     Dosage: 20MG PER DAY
     Route: 048
     Dates: start: 20100113
  13. GLUCOPHAGE [Concomitant]
     Dosage: 1000MG PER DAY
     Route: 048
  14. TRAMADOL HCL [Concomitant]
     Route: 048
  15. LEXOMIL [Concomitant]
     Route: 048
  16. ACETAMINOPHEN [Concomitant]
  17. JANUVIA [Concomitant]
     Dosage: 1TAB PER DAY
     Route: 048
     Dates: start: 20100113
  18. CALCIUM CARBONATE [Concomitant]
     Route: 048
     Dates: start: 20100414
  19. GAVISCON [Concomitant]
     Dosage: 2SAC PER DAY
     Route: 048
     Dates: start: 20080529

REACTIONS (7)
  - MALAISE [None]
  - CHEST PAIN [None]
  - DYSPNOEA [None]
  - TACHYCARDIA [None]
  - CYANOSIS [None]
  - FATIGUE [None]
  - TREMOR [None]
